FAERS Safety Report 8174895-2 (Version None)
Quarter: 2012Q1

REPORT INFORMATION
  Report Type: 
  Country: None (occurrence: None)
  Receive Date: 20120229
  Receipt Date: 20110609
  Transmission Date: 20120608
  Serious: No
  Sender: FDA-Public Use
  Company Number: US-GLAXOSMITHKLINE-A0930934A

PATIENT
  Age: 49 Year
  Sex: Female

DRUGS (5)
  1. CLONIDINE [Concomitant]
  2. TRAMADOL HCL [Concomitant]
  3. SUPPLEMENT [Concomitant]
  4. VALACYCLOVIR [Suspect]
     Indication: VIRAL INFECTION
     Dosage: 1G PER DAY
     Route: 048
     Dates: start: 20100101
  5. ELAVIL [Concomitant]

REACTIONS (4)
  - CARDIAC DISORDER [None]
  - DRUG INEFFECTIVE [None]
  - DYSPNOEA [None]
  - ASTHENIA [None]
